FAERS Safety Report 20993308 (Version 2)
Quarter: 2022Q4

REPORT INFORMATION
  Report Type: Spontaneous
  Country: US (occurrence: US)
  Receive Date: 20220622
  Receipt Date: 20221110
  Transmission Date: 20230113
  Serious: No
  Sender: FDA-Public Use
  Company Number: US-BRISTOL-MYERS SQUIBB COMPANY-2022-055377

PATIENT
  Age: 68 Year
  Sex: Female
  Weight: 111.58 kg

DRUGS (1)
  1. REVLIMID [Suspect]
     Active Substance: LENALIDOMIDE
     Indication: Plasma cell myeloma
     Dosage: EVERY 3WEEKS ONE WEEK OFF
     Route: 048
     Dates: start: 20200901, end: 20220602

REACTIONS (5)
  - Night sweats [Not Recovered/Not Resolved]
  - Dizziness [Unknown]
  - Musculoskeletal stiffness [Unknown]
  - Tremor [Unknown]
  - Peripheral swelling [Unknown]

NARRATIVE: CASE EVENT DATE: 20220601
